FAERS Safety Report 4837399-8 (Version None)
Quarter: 2005Q4

REPORT INFORMATION
  Report Type: 
  Country: None (occurrence: None)
  Receive Date: 20051128
  Receipt Date: 20050512
  Transmission Date: 20060501
  Serious: Yes (Hospitalization)
  Sender: FDA-Public Use
  Company Number: CL-BRISTOL-MYERS SQUIBB COMPANY-12967691

PATIENT
  Age: 73 Year
  Sex: Female
  Weight: 55 kg

DRUGS (13)
  1. IRBESARTAN [Suspect]
     Indication: HYPERTENSION
     Dates: start: 20041130, end: 20050427
  2. BLINDED: PLACEBO [Suspect]
     Indication: HYPERTENSION
     Dates: start: 20041130, end: 20050427
  3. ACENOCOUMAROL [Suspect]
     Indication: PROPHYLAXIS
     Dates: start: 20041130
  4. ENALAPRIL [Concomitant]
     Dates: end: 20050101
  5. FUROSEMIDE [Concomitant]
  6. NITRENDIPINE [Concomitant]
  7. ATENOLOL [Concomitant]
     Dosage: STOPPED 04-FEB-2005; REPLACED CARVEDILOL ON 04-MAR-2005
  8. SPIRONOLACTONE [Concomitant]
     Dosage: INCREASED TO 50 MG ON 11-MAR-2005
     Dates: end: 20050311
  9. DIGOXIN [Concomitant]
  10. CARVEDILOL [Concomitant]
     Dates: start: 20050204, end: 20050304
  11. DIAZEPAM [Concomitant]
     Dates: start: 20050204
  12. AMIODARONE [Concomitant]
     Route: 048
     Dates: start: 20050311
  13. METILDOPA [Concomitant]

REACTIONS (1)
  - HYPERALDOSTERONISM [None]
